FAERS Safety Report 8476451 (Version 2)
Quarter: 2021Q1

REPORT INFORMATION
  Report Type: Other
  Country: ES (occurrence: ES)
  Receive Date: 20120326
  Receipt Date: 20210310
  Transmission Date: 20210420
  Serious: Yes (Death, Other)
  Sender: FDA-Public Use
  Company Number: ES-ROCHE-1048235

PATIENT

DRUGS (4)
  1. METHYLPREDNISOLONE. [Suspect]
     Active Substance: METHYLPREDNISOLONE
     Indication: LUPUS NEPHRITIS
     Route: 065
  2. MYCOPHENOLATE MOFETIL. [Suspect]
     Active Substance: MYCOPHENOLATE MOFETIL
     Indication: LUPUS NEPHRITIS
     Route: 065
  3. RITUXIMAB. [Suspect]
     Active Substance: RITUXIMAB
     Indication: LUPUS NEPHRITIS
     Route: 042
  4. CYCLOPHOSPHAMIDE. [Suspect]
     Active Substance: CYCLOPHOSPHAMIDE
     Indication: LUPUS NEPHRITIS
     Route: 065

REACTIONS (14)
  - Cytomegalovirus viraemia [Unknown]
  - Meningitis pneumococcal [Unknown]
  - Pneumonia [Unknown]
  - Posterior reversible encephalopathy syndrome [Unknown]
  - Cerebrovascular accident [Unknown]
  - Septic shock [Fatal]
  - Pancreatitis [Unknown]
  - Necrotising fasciitis [Unknown]
  - Cerebral haemorrhage [Fatal]
  - Pulmonary embolism [Unknown]
  - Off label use [Unknown]
  - Urinary tract infection [Unknown]
  - Arthritis bacterial [Unknown]
  - Herpes zoster [Unknown]
